FAERS Safety Report 9894175 (Version 1)
Quarter: 2014Q1

REPORT INFORMATION
  Report Type: Spontaneous
  Country: US (occurrence: US)
  Receive Date: 20140213
  Receipt Date: 20140213
  Transmission Date: 20141002
  Serious: Yes (Hospitalization, Other)
  Sender: FDA-Public Use
  Company Number: US-TEVA-462415USA

PATIENT
  Age: 53 Year
  Sex: Male

DRUGS (3)
  1. BUPROPION [Suspect]
     Route: 065
  2. CITALOPRAM [Suspect]
     Route: 065
  3. TRAMADOL [Suspect]
     Route: 065

REACTIONS (1)
  - Serotonin syndrome [Recovering/Resolving]
